FAERS Safety Report 17142277 (Version 1)
Quarter: 2019Q4

REPORT INFORMATION
  Report Type: Spontaneous
  Country: US (occurrence: US)
  Receive Date: 20191211
  Receipt Date: 20191211
  Transmission Date: 20200122
  Serious: No
  Sender: FDA-Public Use
  Company Number: US-JUBILANT CADISTA PHARMACEUTICALS-2019JUB00335

PATIENT
  Age: 80 Year
  Sex: Female
  Weight: 63.27 kg

DRUGS (10)
  1. TYLENOL ARTHRITIS PAIN [Concomitant]
     Active Substance: ACETAMINOPHEN
     Dosage: UNK, AS NEEDED
  2. RECLAST [Concomitant]
     Active Substance: ZOLEDRONIC ACID
  3. ATENOLOL. [Concomitant]
     Active Substance: ATENOLOL
  4. MULTIVITAMIN [Concomitant]
     Active Substance: VITAMINS
  5. LOSARTAN. [Concomitant]
     Active Substance: LOSARTAN
  6. BUDESONIDE. [Concomitant]
     Active Substance: BUDESONIDE
  7. VITAMIN D3 [Concomitant]
     Active Substance: CHOLECALCIFEROL
  8. SPIRONOLACTONE/HCTZ [Concomitant]
     Active Substance: HYDROCHLOROTHIAZIDE\SPIRONOLACTONE
  9. METHYLPREDNISOLONE. [Suspect]
     Active Substance: METHYLPREDNISOLONE
     Indication: PAIN
     Dosage: UNK, AS DIRECTED ON THE PACKAGE
     Route: 048
     Dates: start: 20190806, end: 20190810
  10. CALCIUM [Concomitant]
     Active Substance: CALCIUM

REACTIONS (2)
  - Malaise [Recovered/Resolved]
  - Diarrhoea [Recovered/Resolved]

NARRATIVE: CASE EVENT DATE: 20190809
